FAERS Safety Report 6738481-0 (Version None)
Quarter: 2010Q2

REPORT INFORMATION
  Report Type: 
  Country: None (occurrence: None)
  Receive Date: 20100524
  Receipt Date: 20100511
  Transmission Date: 20101027
  Serious: Yes (Other)
  Sender: FDA-Public Use
  Company Number: PHHY2010IT31243

PATIENT
  Age: 67 Year
  Sex: Male

DRUGS (3)
  1. ZOMETA [Suspect]
     Indication: METASTASES TO BONE
     Dosage: UNK
     Dates: start: 20080501, end: 20091201
  2. SUNITINIB MALATE [Concomitant]
     Dosage: UNK
     Dates: start: 20080501, end: 20080601
  3. SORAFENIB [Concomitant]
     Dosage: UNK
     Dates: start: 20090601, end: 20100301

REACTIONS (1)
  - OSTEONECROSIS OF JAW [None]
